FAERS Safety Report 12358910 (Version 2)
Quarter: 2016Q2

REPORT INFORMATION
  Report Type: Report from Study
  Country: US (occurrence: US)
  Receive Date: 20160512
  Receipt Date: 20160608
  Transmission Date: 20160815
  Serious: Yes (Hospitalization, Other)
  Sender: FDA-Public Use
  Company Number: US-009507513-1605USA003898

PATIENT
  Age: 42 Year
  Sex: Male

DRUGS (1)
  1. ERTAPENEM SODIUM [Suspect]
     Active Substance: ERTAPENEM SODIUM
     Dosage: 1G/ DAILY
     Dates: start: 20151121

REACTIONS (2)
  - Renal stone removal [Unknown]
  - Lithotripsy [Unknown]

NARRATIVE: CASE EVENT DATE: 201602
